FAERS Safety Report 23308939 (Version 1)
Quarter: 2023Q4

REPORT INFORMATION
  Report Type: Spontaneous
  Country: US (occurrence: None)
  Receive Date: 20231215
  Receipt Date: 20231215
  Transmission Date: 20240109
  Serious: Yes (Hospitalization)
  Sender: FDA-Public Use
  Company Number: None

PATIENT
  Sex: Female

DRUGS (1)
  1. STELARA [Suspect]
     Active Substance: USTEKINUMAB
     Indication: Crohn^s disease
     Dosage: OTHER FREQUENCY : EVERY8WEEKS;?
     Route: 058
     Dates: start: 202304

REACTIONS (6)
  - Infection [None]
  - Organising pneumonia [None]
  - Influenza A virus test positive [None]
  - Bronchitis [None]
  - Basal cell carcinoma [None]
  - Pulmonary embolism [None]
